FAERS Safety Report 10574557 (Version 4)
Quarter: 2015Q1

REPORT INFORMATION
  Report Type: Report from Study
  Country: CZ (occurrence: CZ)
  Receive Date: 20141110
  Receipt Date: 20150108
  Transmission Date: 20150720
  Serious: Yes (Death, Hospitalization, Other)
  Sender: FDA-Public Use
  Company Number: CZ-ABBVIE-14K-217-1305145-00

PATIENT
  Age: 56 Year
  Sex: Male
  Weight: 86 kg

DRUGS (3)
  1. NIMESULIDUM [Concomitant]
     Indication: PRODUCT USED FOR UNKNOWN INDICATION
  2. APO-ALLOPURINOL [Concomitant]
     Active Substance: ALLOPURINOL
     Indication: HYPERURICAEMIA
     Route: 048
     Dates: start: 2013, end: 20141026
  3. HUMIRA [Suspect]
     Active Substance: ADALIMUMAB
     Indication: ANKYLOSING SPONDYLITIS
     Route: 058
     Dates: start: 20100305, end: 20140816

REACTIONS (5)
  - Erysipelas [Not Recovered/Not Resolved]
  - Wound infection [Unknown]
  - Pulmonary embolism [Fatal]
  - Renal failure [Unknown]
  - Aspiration [Unknown]

NARRATIVE: CASE EVENT DATE: 20141027
